FAERS Safety Report 8265873-3 (Version None)
Quarter: 2012Q2

REPORT INFORMATION
  Report Type: 
  Country: None (occurrence: None)
  Receive Date: 20120406
  Receipt Date: 20111114
  Transmission Date: 20120825
  Serious: Yes (Hospitalization)
  Sender: FDA-Public Use
  Company Number: GB-GLAXOSMITHKLINE-B0764094A

PATIENT
  Sex: Male

DRUGS (35)
  1. ASPIRIN [Concomitant]
  2. AVANDAMET [Concomitant]
  3. FERROUS SULFATE TAB [Concomitant]
  4. MUCODYNE [Concomitant]
  5. RANITIDINE [Concomitant]
  6. TRIMOVATE [Concomitant]
  7. FRUSID [Concomitant]
  8. PINETARSOL [Concomitant]
  9. ROSIGLITAZONE [Suspect]
     Indication: PRODUCT USED FOR UNKNOWN INDICATION
     Route: 065
     Dates: start: 20060522
  10. QUININE BISULPHATE [Concomitant]
  11. SALBUTAMOL + IPRATROPIUM BROMIDE [Concomitant]
  12. ADALAT [Concomitant]
  13. PERINDOPRIL ERBUMINE [Concomitant]
  14. CO-DYDRAMOL [Concomitant]
  15. EPADERM [Concomitant]
  16. PREDNISOLONE [Concomitant]
  17. COCOIS [Concomitant]
  18. METFORMIN HCL [Concomitant]
  19. CEPHALEXIN [Concomitant]
  20. MIRTAZAPINE [Concomitant]
  21. DOMPERIDONE [Concomitant]
  22. DOVOBET [Concomitant]
  23. CHLORAMPHENICOL [Concomitant]
  24. CO-AMILOFRUSE [Concomitant]
  25. FLUTICASONE PROPIONATE/SALMETEROL [Concomitant]
  26. BETAMETHASONE VALERATE [Concomitant]
  27. AMOXICILLIN [Concomitant]
  28. ESCITALOPRAM [Concomitant]
  29. ACETAMINOPHEN [Concomitant]
  30. CALCITRIOL [Concomitant]
  31. GLICLAZIDE [Concomitant]
  32. ACETAMINOPHEN AND CODEINE PHOSPHATE [Concomitant]
  33. CAPASAL [Concomitant]
  34. AQUEOUS CREAM [Concomitant]
  35. FUSIDIC ACID [Concomitant]

REACTIONS (47)
  - MACULAR DEGENERATION [None]
  - NEPHROLITHIASIS [None]
  - CONSTIPATION [None]
  - SOMNOLENCE [None]
  - ARTHRALGIA [None]
  - SNORING [None]
  - MALAISE [None]
  - DIABETIC RETINOPATHY [None]
  - CONGESTIVE CARDIOMYOPATHY [None]
  - CARDIORENAL SYNDROME [None]
  - POOR QUALITY SLEEP [None]
  - CHEST PAIN [None]
  - TYPE 2 DIABETES MELLITUS [None]
  - ANAEMIA [None]
  - BASAL CELL CARCINOMA [None]
  - FOREARM FRACTURE [None]
  - NOCTURNAL DYSPNOEA [None]
  - INFLUENZA LIKE ILLNESS [None]
  - DYSPNOEA EXERTIONAL [None]
  - OEDEMA PERIPHERAL [None]
  - BENIGN PROSTATIC HYPERPLASIA [None]
  - DIZZINESS [None]
  - HAEMATURIA [None]
  - DEPRESSED MOOD [None]
  - DIARRHOEA [None]
  - BLADDER NEOPLASM [None]
  - FATIGUE [None]
  - FLATULENCE [None]
  - MYOCARDIAL ISCHAEMIA [None]
  - OBESITY [None]
  - PALPITATIONS [None]
  - LEFT VENTRICULAR DYSFUNCTION [None]
  - ORTHOPNOEA [None]
  - PAIN [None]
  - SLEEP APNOEA SYNDROME [None]
  - BACK PAIN [None]
  - DYSPEPSIA [None]
  - HYPOTHYROIDISM [None]
  - PULMONARY CONGESTION [None]
  - PSORIASIS [None]
  - OSTEOARTHRITIS [None]
  - LOWER RESPIRATORY TRACT INFECTION [None]
  - RENAL FAILURE CHRONIC [None]
  - CARDIAC FAILURE [None]
  - BUNDLE BRANCH BLOCK LEFT [None]
  - DYSPNOEA [None]
  - ASBESTOSIS [None]
